FAERS Safety Report 11428305 (Version 1)
Quarter: 2015Q3

REPORT INFORMATION
  Report Type: Spontaneous
  Country: US (occurrence: US)
  Receive Date: 20150828
  Receipt Date: 20150828
  Transmission Date: 20151125
  Serious: No
  Sender: FDA-Public Use
  Company Number: US-ROCHE-1237883

PATIENT
  Sex: Male
  Weight: 112.59 kg

DRUGS (17)
  1. VICTRELIS [Suspect]
     Active Substance: BOCEPREVIR
     Indication: CHRONIC HEPATITIS C
     Route: 048
  2. CARBAMIDE PEROXIDE [Concomitant]
     Active Substance: CARBAMIDE PEROXIDE
     Dosage: 2 DROPS TO AFFECTED EAR CANAL, THREE TIMES IN A DAY PRIOR TO RIGHT EAR IRRIGATION.
     Route: 065
  3. NITROGLYCERINE [Concomitant]
     Active Substance: NITROGLYCERIN
     Indication: CHEST PAIN
     Dosage: DISSOLVE ONE TABLET UNDER TONGUE AS NEEDED EVERY 5 MIN.
     Route: 048
  4. RIBAVIRIN. [Suspect]
     Active Substance: RIBAVIRIN
     Indication: CHRONIC HEPATITIS C
     Dosage: THREE CAPSULE ORALLY TWO TIMES IN A DAY (DIVIDED DOSES)
     Route: 048
     Dates: start: 20130521
  5. DOXAZOSIN [Concomitant]
     Active Substance: DOXAZOSIN\DOXAZOSIN MESYLATE
  6. FINASTERIDE. [Concomitant]
     Active Substance: FINASTERIDE
     Dosage: 1 OR 2 TAB EVERY DAY
     Route: 048
  7. SERTRALINE HCL [Concomitant]
     Active Substance: SERTRALINE HYDROCHLORIDE
     Route: 065
  8. PEGASYS [Suspect]
     Active Substance: PEGINTERFERON ALFA-2A
     Indication: CHRONIC HEPATITIS C
     Dosage: 180 MCG /0.5 ML
     Route: 058
     Dates: start: 20130521
  9. METHADONE [Concomitant]
     Active Substance: METHADONE HYDROCHLORIDE
     Route: 048
  10. PANTOPRAZOLE [Concomitant]
     Active Substance: PANTOPRAZOLE SODIUM
     Dosage: ONE TABLET TWO TIMES IN A DAY
     Route: 048
  11. BISMUTH SUBSALICYLATE. [Concomitant]
     Active Substance: BISMUTH SUBSALICYLATE
     Dosage: 2 TABLET ORALLY TWO TIMES IN A DAY AFTER MEAL
     Route: 065
  12. CLOTRIM [Concomitant]
     Dosage: AS DIRECTED EXTERNALLY TWO TIMES IN DAY
     Route: 065
  13. LACTULOSE. [Concomitant]
     Active Substance: LACTULOSE
     Dosage: 10GM/15 ML
     Route: 048
  14. HYDROCODONE HYDROCHLORIDE [Concomitant]
     Active Substance: HYDROCODONE HYDROCHLORIDE
     Indication: PAIN
     Route: 065
  15. FUROSEMIDE. [Concomitant]
     Active Substance: FUROSEMIDE
     Route: 048
  16. NAPROXEN. [Concomitant]
     Active Substance: NAPROXEN
     Route: 048
  17. RISPERIDONE. [Concomitant]
     Active Substance: RISPERIDONE
     Route: 065

REACTIONS (1)
  - Toothache [Unknown]
